FAERS Safety Report 8473202-5 (Version None)
Quarter: 2012Q2

REPORT INFORMATION
  Report Type: 
  Country: None (occurrence: None)
  Receive Date: 20120627
  Receipt Date: 20120621
  Transmission Date: 20120825
  Serious: Yes (Other)
  Sender: FDA-Public Use
  Company Number: BR-PFIZER INC-2012026237

PATIENT
  Age: 65 Year
  Sex: Female
  Weight: 93 kg

DRUGS (4)
  1. VARENICLINE TARTRATE [Suspect]
     Indication: SMOKING CESSATION THERAPY
     Dosage: UNK, TWICE DAILY
     Route: 048
     Dates: start: 20120131, end: 20120501
  2. ALENDRONATE SODIUM [Concomitant]
     Indication: OSTEOPOROSIS
     Dosage: UNK, ONCE WEEKLY
     Dates: start: 20070101
  3. CRESTOR [Concomitant]
     Indication: BLOOD CHOLESTEROL INCREASED
     Dosage: 10 MG, 1X/DAY AT NIGHT
     Dates: start: 20100101
  4. INDAPAMIDE [Concomitant]
     Indication: HYPERTENSION
     Dosage: 1.5 MG, 1X/DAY
     Dates: start: 20080101

REACTIONS (7)
  - FATIGUE [None]
  - HEADACHE [None]
  - ANXIETY [None]
  - INSOMNIA [None]
  - NERVOUSNESS [None]
  - ABNORMAL DREAMS [None]
  - HYPERTENSIVE CRISIS [None]
